FAERS Safety Report 18794886 (Version 1)
Quarter: 2021Q1

REPORT INFORMATION
  Report Type: Spontaneous
  Country: US (occurrence: US)
  Receive Date: 20210127
  Receipt Date: 20210127
  Transmission Date: 20210419
  Serious: No
  Sender: FDA-Public Use
  Company Number: US-BAYER-2021-033097

PATIENT
  Sex: Female

DRUGS (1)
  1. BETASERON [Suspect]
     Active Substance: INTERFERON BETA-1B
     Dosage: UNK

REACTIONS (7)
  - Hypoaesthesia [None]
  - Paraesthesia [None]
  - Restless legs syndrome [None]
  - Balance disorder [None]
  - Fall [None]
  - Asthenia [None]
  - Depression [None]
